FAERS Safety Report 10028234 (Version 1)
Quarter: 2014Q1

REPORT INFORMATION
  Report Type: Spontaneous
  Country: GB (occurrence: GB)
  Receive Date: 20140321
  Receipt Date: 20140321
  Transmission Date: 20141002
  Serious: Yes (Life-Threatening, Hospitalization)
  Sender: FDA-Public Use
  Company Number: 2014SP001423

PATIENT
  Age: 54 Year
  Sex: Male

DRUGS (8)
  1. GEMCITABINE [Suspect]
     Indication: PRODUCT USED FOR UNKNOWN INDICATION
     Route: 042
  2. IFOSFAMIDE [Suspect]
     Indication: PRODUCT USED FOR UNKNOWN INDICATION
     Route: 042
  3. MABTHERA [Suspect]
     Indication: PRODUCT USED FOR UNKNOWN INDICATION
     Route: 042
  4. VINORELBINE [Suspect]
     Indication: PRODUCT USED FOR UNKNOWN INDICATION
     Route: 042
  5. ACICLOVIR [Concomitant]
  6. ALLOPURINOL [Concomitant]
  7. SULPHAMETHOXAZOLE [Concomitant]
     Route: 048
  8. TRIMETHOPRIM [Concomitant]
     Route: 048

REACTIONS (2)
  - Neutropenic sepsis [Unknown]
  - Hypophosphataemia [Unknown]
